FAERS Safety Report 6716417-6 (Version None)
Quarter: 2010Q2

REPORT INFORMATION
  Report Type: 
  Country: None (occurrence: None)
  Receive Date: 20100507
  Receipt Date: 20100502
  Transmission Date: 20101027
  Serious: Yes (Hospitalization)
  Sender: FDA-Public Use
  Company Number: US-ABBOTT-09P-163-0595358-00

PATIENT
  Sex: Female
  Weight: 68.1 kg

DRUGS (7)
  1. HUMIRA [Suspect]
     Indication: CROHN'S DISEASE
     Dates: start: 20080901
  2. LIALDA [Concomitant]
     Indication: CROHN'S DISEASE
  3. MULTIPLE VITAMINS [Concomitant]
     Indication: ROUTINE HEALTH MAINTENANCE
  4. FOLIC ACID [Concomitant]
     Indication: CROHN'S DISEASE
  5. VITAMIN B-12 [Concomitant]
     Indication: ROUTINE HEALTH MAINTENANCE
  6. CALCIUM [Concomitant]
     Indication: ROUTINE HEALTH MAINTENANCE
  7. CIPRO [Concomitant]
     Indication: DRUG USE FOR UNKNOWN INDICATION
     Route: 048

REACTIONS (13)
  - ARTHRALGIA [None]
  - DEVICE RELATED INFECTION [None]
  - DIARRHOEA [None]
  - JOINT CREPITATION [None]
  - MALAISE [None]
  - MIGRAINE [None]
  - MUSCLE SPASMS [None]
  - NERVE COMPRESSION [None]
  - PITUITARY TUMOUR BENIGN [None]
  - TEMPOROMANDIBULAR JOINT SYNDROME [None]
  - THROMBOSIS [None]
  - VISUAL IMPAIRMENT [None]
  - VOMITING [None]
